FAERS Safety Report 5289240-X (Version None)
Quarter: 2007Q1

REPORT INFORMATION
  Report Type: 
  Country: None (occurrence: None)
  Receive Date: 20070126
  Receipt Date: 20061012
  Transmission Date: 20070707
  Serious: Yes (Hospitalization)
  Sender: FDA-Public Use
  Company Number: 06P-163-0346838-00

PATIENT
  Age: 11 Month
  Sex: Male
  Weight: 9.5255 kg

DRUGS (2)
  1. OMNICEF [Suspect]
     Indication: EAR INFECTION
     Dosage: 1.25 TEASPOON, 1 IN 1 D, PER ORAL
     Route: 048
     Dates: start: 20060826, end: 20060929
  2. ORAPRED [Concomitant]

REACTIONS (2)
  - CLOSTRIDIAL INFECTION [None]
  - HAEMATOCHEZIA [None]
